FAERS Safety Report 9359262 (Version 1)
Quarter: 2013Q2

REPORT INFORMATION
  Report Type: Spontaneous
  Country: US (occurrence: US)
  Receive Date: 20130620
  Receipt Date: 20130620
  Transmission Date: 20140414
  Serious: No
  Sender: FDA-Public Use
  Company Number: US-US-EMD SERONO, INC.-7171994

PATIENT
  Age: 46 Year
  Sex: Female

DRUGS (2)
  1. REBIF [Suspect]
     Indication: MULTIPLE SCLEROSIS
     Route: 058
     Dates: start: 20090331
  2. TYLENOL [Concomitant]
     Indication: PREMEDICATION

REACTIONS (4)
  - Dysphagia [Recovered/Resolved]
  - Ageusia [Unknown]
  - Choking sensation [Unknown]
  - Multiple sclerosis relapse [Not Recovered/Not Resolved]
